FAERS Safety Report 6119702-4 (Version None)
Quarter: 2009Q1

REPORT INFORMATION
  Report Type: 
  Country: None (occurrence: None)
  Receive Date: 20090316
  Receipt Date: 20090310
  Transmission Date: 20090719
  Serious: Yes (Other)
  Sender: FDA-Public Use
  Company Number: ZA-PFIZER INC-2008073871

PATIENT

DRUGS (7)
  1. BLINDED *EFAVIRENZ [Suspect]
     Dosage: 150 MG, 2X/DAY
     Route: 048
     Dates: start: 20060511, end: 20061109
  2. BLINDED *PLACEBO [Suspect]
     Dosage: 150 MG, 2X/DAY
     Route: 048
     Dates: start: 20060511, end: 20061109
  3. BLINDED MARAVIROC [Suspect]
     Dosage: 150 MG, 2X/DAY
     Route: 048
     Dates: start: 20060511, end: 20061109
  4. COMBIVIR [Suspect]
     Route: 048
     Dates: start: 20060511, end: 20061109
  5. SUSTIVA [Concomitant]
     Route: 048
     Dates: start: 20060511, end: 20061109
  6. VITAMIN B COMPLEX CAP [Concomitant]
     Route: 048
     Dates: start: 20030401
  7. CO-TRIMOXAZOLE [Concomitant]
     Route: 048
     Dates: start: 20030401

REACTIONS (1)
  - PULMONARY TUBERCULOSIS [None]
